FAERS Safety Report 25193603 (Version 1)
Quarter: 2025Q2

REPORT INFORMATION
  Report Type: Report from Study
  Country: US (occurrence: US)
  Receive Date: 20250414
  Receipt Date: 20250414
  Transmission Date: 20250717
  Serious: Yes (Other)
  Sender: ABBVIE
  Company Number: US-ABBVIE-6191822

PATIENT
  Age: 60 Year
  Sex: Female
  Weight: 106 kg

DRUGS (16)
  1. HUMIRA [Suspect]
     Active Substance: ADALIMUMAB
     Indication: Rheumatoid arthritis
     Dosage: FORM STRENGTH: 40 MILLIGRAM
     Route: 058
     Dates: start: 20130101
  2. CEVIMELINE [Concomitant]
     Active Substance: CEVIMELINE
     Indication: Dry mouth
  3. PANTOPRAZOLE [Concomitant]
     Active Substance: PANTOPRAZOLE
     Indication: Gastrooesophageal reflux disease
  4. SERTRALINE [Concomitant]
     Active Substance: SERTRALINE HYDROCHLORIDE
     Indication: Depression
  5. POTASSIUM [Concomitant]
     Active Substance: POTASSIUM
     Indication: Cardiac disorder
  6. ATORVASTATIN [Concomitant]
     Active Substance: ATORVASTATIN
     Indication: Blood cholesterol increased
  7. TRAZODONE [Concomitant]
     Active Substance: TRAZODONE HYDROCHLORIDE
     Indication: Insomnia
  8. TRAMADOL [Concomitant]
     Active Substance: TRAMADOL
     Indication: Back pain
  9. MONTELUKAST [Concomitant]
     Active Substance: MONTELUKAST
     Indication: Asthma
  10. XYZAL [Concomitant]
     Active Substance: LEVOCETIRIZINE DIHYDROCHLORIDE
     Indication: Multiple allergies
  11. BENZTROPINE [Concomitant]
     Active Substance: BENZTROPINE
     Indication: Tremor
  12. ARIPIPRAZOLE [Concomitant]
     Active Substance: ARIPIPRAZOLE
     Indication: Depression
  13. LINZESS [Concomitant]
     Active Substance: LINACLOTIDE
     Indication: Constipation
  14. LYRICA [Concomitant]
     Active Substance: PREGABALIN
     Indication: Neuropathy peripheral
  15. VALSARTAN [Concomitant]
     Active Substance: VALSARTAN
     Indication: Hypertension
  16. OXYBUTYNIN [Concomitant]
     Active Substance: OXYBUTYNIN
     Indication: Urinary incontinence

REACTIONS (5)
  - Surgery [Unknown]
  - Musculoskeletal disorder [Recovered/Resolved]
  - Gastrointestinal disorder [Unknown]
  - Balance disorder [Recovered/Resolved]
  - Fall [Recovered/Resolved]

NARRATIVE: CASE EVENT DATE: 20200101
